FAERS Safety Report 10094982 (Version 1)
Quarter: 2014Q2

REPORT INFORMATION
  Report Type: Spontaneous
  Country: US (occurrence: US)
  Receive Date: 20140422
  Receipt Date: 20140422
  Transmission Date: 20141212
  Serious: Yes (Disabling)
  Sender: FDA-Public Use
  Company Number: US-SA-2014SA047303

PATIENT
  Age: 63 Year
  Sex: Male

DRUGS (2)
  1. LANTUS SOLOSTAR [Suspect]
     Indication: DIABETES MELLITUS
     Dosage: DOSE:62 UNIT(S)
     Route: 065
  2. SOLOSTAR [Concomitant]

REACTIONS (4)
  - Blindness [Not Recovered/Not Resolved]
  - Neuropathy peripheral [Not Recovered/Not Resolved]
  - Limb discomfort [Not Recovered/Not Resolved]
  - Drug administration error [Unknown]
